FAERS Safety Report 6374483-4 (Version None)
Quarter: 2009Q3

REPORT INFORMATION
  Report Type: 
  Country: None (occurrence: None)
  Receive Date: 20090921
  Receipt Date: 20090910
  Transmission Date: 20100115
  Serious: Yes (Hospitalization)
  Sender: FDA-Public Use
  Company Number: 2008AL007563

PATIENT
  Age: 43 Year
  Sex: Male
  Weight: 90.7194 kg

DRUGS (21)
  1. DIGOXIN [Suspect]
     Dosage: 0.125MG, DAILY, PO
     Route: 048
  2. CLONAZEPAM [Concomitant]
  3. ASPIRIN [Concomitant]
  4. PREVACID [Concomitant]
  5. PERCOCET [Concomitant]
  6. ALBUTEROL [Concomitant]
  7. COREG [Concomitant]
  8. EFFEXOR [Concomitant]
  9. REQUIP [Concomitant]
  10. VALIUM [Concomitant]
  11. AVALIDE [Concomitant]
  12. WELLBUTRIN [Concomitant]
  13. AVAPRO [Concomitant]
  14. KLONOPIN [Concomitant]
  15. FLEXERIL [Concomitant]
  16. TORADOL [Concomitant]
  17. DILAUDID [Concomitant]
  18. COMPAZINE [Concomitant]
  19. LISINOPRIL [Concomitant]
  20. NITROGLYCERIN [Concomitant]
  21. LOVENOX [Concomitant]

REACTIONS (28)
  - ABDOMINAL DISCOMFORT [None]
  - AGORAPHOBIA [None]
  - ARTHRALGIA [None]
  - ASTHENIA [None]
  - BACK PAIN [None]
  - CHEST PAIN [None]
  - CORONARY ARTERY DISEASE [None]
  - DEPRESSION [None]
  - DIZZINESS [None]
  - EATING DISORDER [None]
  - EJECTION FRACTION DECREASED [None]
  - FALL [None]
  - FATIGUE [None]
  - GAIT DISTURBANCE [None]
  - HYPOAESTHESIA [None]
  - MARITAL PROBLEM [None]
  - MULTIPLE INJURIES [None]
  - NAUSEA [None]
  - PANIC DISORDER [None]
  - PARAESTHESIA [None]
  - PRESYNCOPE [None]
  - SLEEP DISORDER [None]
  - SNORING [None]
  - SOMNOLENCE [None]
  - STRESS [None]
  - TREMOR [None]
  - WEIGHT DECREASED [None]
  - WEIGHT INCREASED [None]
